FAERS Safety Report 9704128 (Version 1)
Quarter: 2013Q4

REPORT INFORMATION
  Report Type: Spontaneous
  Country: US (occurrence: US)
  Receive Date: 20131122
  Receipt Date: 20131122
  Transmission Date: 20140711
  Serious: No
  Sender: FDA-Public Use
  Company Number: US-GLAXOSMITHKLINE-A1018282A

PATIENT
  Sex: Male

DRUGS (2)
  1. WELLBUTRIN SR [Suspect]
     Indication: DEPRESSION
     Dosage: 150MG ALTERNATE DAYS
     Route: 048
  2. HERBAL SUPPLEMENT [Suspect]
     Indication: PRODUCT USED FOR UNKNOWN INDICATION

REACTIONS (4)
  - Mood altered [Unknown]
  - Drug interaction [Unknown]
  - Tinnitus [Not Recovered/Not Resolved]
  - Dry mouth [Recovering/Resolving]
